FAERS Safety Report 4402174-5 (Version None)
Quarter: 2004Q3

REPORT INFORMATION
  Report Type: 
  Country: None (occurrence: None)
  Receive Date: 20040716
  Receipt Date: 20040702
  Transmission Date: 20050211
  Serious: Yes (Other)
  Sender: FDA-Public Use
  Company Number: 200401324

PATIENT
  Age: 78 Year
  Sex: Male

DRUGS (2)
  1. SOSEGON (PENTAZOCINE) [Suspect]
     Indication: PROSTATE CANCER
     Dosage: 25MG TID   PO
     Route: 048
     Dates: start: 20040508
  2. SOSEGON (PENTAZOCINE) [Suspect]
     Indication: PROSTATE CANCER
     Dosage: 25MG QD PO
     Route: 048
     Dates: end: 20040702

REACTIONS (2)
  - DELUSION [None]
  - METASTASES TO CENTRAL NERVOUS SYSTEM [None]
